FAERS Safety Report 23793855 (Version 3)
Quarter: 2024Q3

REPORT INFORMATION
  Report Type: Spontaneous
  Country: IE (occurrence: IE)
  Receive Date: 20240429
  Receipt Date: 20240705
  Transmission Date: 20241016
  Serious: No
  Sender: PFIZER
  Company Number: IE-PFIZER INC-PV202400048594

PATIENT
  Age: 23 Year
  Sex: Male

DRUGS (1)
  1. GENOTROPIN [Suspect]
     Active Substance: SOMATROPIN
     Dosage: 1.4 MG

REACTIONS (1)
  - Device use error [Unknown]
